FAERS Safety Report 9330830 (Version 2)
Quarter: 2013Q2

REPORT INFORMATION
  Report Type: Report from Study
  Country: US (occurrence: US)
  Receive Date: 20130605
  Receipt Date: 20130613
  Transmission Date: 20140414
  Serious: Yes (Other)
  Sender: FDA-Public Use
  Company Number: PHHO2013US007368

PATIENT
  Age: 42 Year
  Sex: Female
  Weight: 81.65 kg

DRUGS (2)
  1. SOM230 [Suspect]
     Indication: INTRADUCTAL PROLIFERATIVE BREAST LESION
     Dosage: 600 UG, BID
     Route: 058
     Dates: start: 20130529, end: 20130530
  2. SYNTHROID [Concomitant]
     Dosage: 75 UG, DAILY

REACTIONS (1)
  - Hypersensitivity [Recovered/Resolved]
